FAERS Safety Report 5299137-7 (Version None)
Quarter: 2007Q2

REPORT INFORMATION
  Report Type: 
  Country: None (occurrence: None)
  Receive Date: 20070411
  Receipt Date: 20070411
  Transmission Date: 20071010
  Serious: Yes (Other)
  Sender: FDA-Public Use
  Company Number: None

PATIENT
  Age: 54 Year
  Sex: Male
  Weight: 81.6 kg

DRUGS (1)
  1. LAMICTAL [Suspect]
     Indication: SCHIZOAFFECTIVE DISORDER
     Dosage: 50MG, 25MG BID, ORAL
     Route: 048
     Dates: start: 20070212, end: 20070305

REACTIONS (1)
  - HYPONATRAEMIA [None]
